FAERS Safety Report 14524459 (Version 5)
Quarter: 2018Q2

REPORT INFORMATION
  Report Type: Spontaneous
  Country: PR (occurrence: PR)
  Receive Date: 20180213
  Receipt Date: 20180628
  Transmission Date: 20180711
  Serious: Yes (Other)
  Sender: FDA-Public Use
  Company Number: PR-PFIZER INC-2018061855

PATIENT
  Age: 76 Year
  Sex: Female
  Weight: 45.35 kg

DRUGS (2)
  1. IBRANCE [Suspect]
     Active Substance: PALBOCICLIB
     Indication: BREAST CANCER
     Dosage: 125 MG, CYCLIC (DAILY, FOR 21 DAYS/7 DAYS OFF )
     Route: 048
     Dates: start: 20180125
  2. IBRANCE [Suspect]
     Active Substance: PALBOCICLIB
     Dosage: 75 MG, 1X/DAY (1-21 DAYS)
     Route: 048

REACTIONS (11)
  - Platelet count decreased [Unknown]
  - Weight decreased [Unknown]
  - Peripheral swelling [Unknown]
  - Neoplasm progression [Unknown]
  - Decreased appetite [Unknown]
  - White blood cell count decreased [Unknown]
  - Cough [Unknown]
  - Haemoglobin decreased [Unknown]
  - Dysphagia [Unknown]
  - Pneumonia [Unknown]
  - Red blood cell count decreased [Unknown]

NARRATIVE: CASE EVENT DATE: 2018
